FAERS Safety Report 14986708 (Version 2)
Quarter: 2018Q2

REPORT INFORMATION
  Report Type: Spontaneous
  Country: US (occurrence: US)
  Receive Date: 20180608
  Receipt Date: 20180615
  Transmission Date: 20180711
  Serious: Yes (Life-Threatening, Hospitalization)
  Sender: FDA-Public Use
  Company Number: US-ASTRAZENECA-2018SE73231

PATIENT
  Age: 81 Year
  Sex: Male
  Weight: 70.9 kg

DRUGS (18)
  1. ELDEPRYL [Concomitant]
     Active Substance: SELEGILINE HYDROCHLORIDE
  2. DELTASONE [Concomitant]
     Active Substance: PREDNISONE
     Dosage: 2 TABS BY MOUTH DAILY FOR 5 DAYS
     Route: 048
  3. TARCEVA [Concomitant]
     Active Substance: ERLOTINIB HYDROCHLORIDE
  4. PARAPLATIN [Concomitant]
     Active Substance: CARBOPLATIN
     Dosage: 600 MG/0.6 ML
     Route: 042
  5. NEULASTA [Concomitant]
     Active Substance: PEGFILGRASTIM
     Dosage: 6 MG/0.6 ML
     Route: 058
  6. TAGRISSO [Suspect]
     Active Substance: OSIMERTINIB
     Indication: NON-SMALL CELL LUNG CANCER
     Route: 048
     Dates: start: 20180523, end: 20180530
  7. ASPIRIN. [Concomitant]
     Active Substance: ASPIRIN
     Route: 048
  8. SINEMET CR [Concomitant]
     Active Substance: CARBIDOPA\LEVODOPA
     Dosage: 50/200 MG, 1DF, TWO TIMES A DAY
     Route: 048
  9. LASIX [Concomitant]
     Active Substance: FUROSEMIDE
     Route: 048
  10. PRAVACHOL [Concomitant]
     Active Substance: PRAVASTATIN SODIUM
     Route: 048
  11. NIZORAL [Concomitant]
     Active Substance: KETOCONAZOLE
  12. FLUOCINONIDE. [Concomitant]
     Active Substance: FLUOCINONIDE
     Dosage: AS REQUIRED
  13. BENEMID [Concomitant]
     Active Substance: PROBENECID
     Route: 048
  14. TAGRISSO [Suspect]
     Active Substance: OSIMERTINIB
     Indication: NON-SMALL CELL LUNG CANCER
     Route: 048
     Dates: start: 20180519, end: 20180523
  15. COREG [Concomitant]
     Active Substance: CARVEDILOL
     Route: 048
  16. DIOVAN [Concomitant]
     Active Substance: VALSARTAN
     Route: 048
  17. ALBUTEROL. [Concomitant]
     Active Substance: ALBUTEROL
     Indication: WHEEZING
     Dosage: 2 PUFFS BY MOUTH EVERY 4 HOURS AS NEEDED
  18. ALBUTEROL. [Concomitant]
     Active Substance: ALBUTEROL
     Indication: DYSPNOEA
     Dosage: 2 PUFFS BY MOUTH EVERY 4 HOURS AS NEEDED

REACTIONS (8)
  - Hypoxia [Recovered/Resolved]
  - Dyspnoea [Recovered/Resolved]
  - Bronchospasm [Unknown]
  - Wheezing [Recovered/Resolved]
  - Drug hypersensitivity [Unknown]
  - Urticaria [Unknown]
  - Rash [Recovered/Resolved]
  - Lip swelling [Unknown]

NARRATIVE: CASE EVENT DATE: 20180521
